FAERS Safety Report 19069688 (Version 3)
Quarter: 2021Q2

REPORT INFORMATION
  Report Type: Report from Study
  Country: CA (occurrence: CA)
  Receive Date: 20210329
  Receipt Date: 20210522
  Transmission Date: 20210717
  Serious: Yes (Other)
  Sender: FDA-Public Use
  Company Number: NVSC2021CA002951

PATIENT
  Sex: Female

DRUGS (1)
  1. MAYZENT [Suspect]
     Active Substance: SIPONIMOD
     Indication: SECONDARY PROGRESSIVE MULTIPLE SCLEROSIS
     Dosage: UNK
     Route: 048
     Dates: start: 20201206, end: 20210510

REACTIONS (9)
  - Ear pruritus [Unknown]
  - Dysphonia [Unknown]
  - SARS-CoV-2 test positive [Unknown]
  - Mobility decreased [Unknown]
  - Fatigue [Not Recovered/Not Resolved]
  - Lymphocyte count abnormal [Unknown]
  - Liver disorder [Unknown]
  - General physical health deterioration [Unknown]
  - Oropharyngeal pain [Not Recovered/Not Resolved]
